FAERS Safety Report 16251049 (Version 3)
Quarter: 2019Q4

REPORT INFORMATION
  Report Type: Spontaneous
  Country: US (occurrence: US)
  Receive Date: 20190429
  Receipt Date: 20191119
  Transmission Date: 20200122
  Serious: Yes (Other)
  Sender: FDA-Public Use
  Company Number: US-PFIZER INC-2019179767

PATIENT
  Age: 58 Year
  Sex: Female

DRUGS (1)
  1. XELJANZ XR [Suspect]
     Active Substance: TOFACITINIB CITRATE
     Dosage: 11 MG, UNK

REACTIONS (7)
  - Depression [Unknown]
  - Malaise [Unknown]
  - Product dose omission [Unknown]
  - Mobility decreased [Unknown]
  - Suicidal ideation [Unknown]
  - Pain [Unknown]
  - Rheumatoid arthritis [Unknown]
